FAERS Safety Report 11387897 (Version 4)
Quarter: 2015Q4

REPORT INFORMATION
  Report Type: Spontaneous
  Country: US (occurrence: US)
  Receive Date: 20150817
  Receipt Date: 20151007
  Transmission Date: 20160304
  Serious: Yes (Hospitalization)
  Sender: FDA-Public Use
  Company Number: US-BAYER-2015-399172

PATIENT
  Sex: Male

DRUGS (1)
  1. BAYER GENUINE ASPIRIN [Suspect]
     Active Substance: ASPIRIN
     Route: 048

REACTIONS (12)
  - Ear disorder [None]
  - Product use issue [None]
  - Confusional state [None]
  - Headache [Recovering/Resolving]
  - Moaning [None]
  - Loss of consciousness [None]
  - Visual impairment [None]
  - Unevaluable event [None]
  - Cerebrovascular accident [None]
  - Muscular weakness [None]
  - Ear pain [Recovering/Resolving]
  - Drug dose omission [None]
